FAERS Safety Report 6774729-4 (Version None)
Quarter: 2010Q2

REPORT INFORMATION
  Report Type: 
  Country: None (occurrence: None)
  Receive Date: 20100615
  Receipt Date: 20100615
  Transmission Date: 20101027
  Serious: No
  Sender: FDA-Public Use
  Company Number: None

PATIENT

DRUGS (1)
  1. DEXILANT [Suspect]
     Indication: GASTROOESOPHAGEAL REFLUX DISEASE
     Dosage: ONE DAILY PO
     Route: 048
     Dates: start: 20100301, end: 20100501

REACTIONS (2)
  - BLOOD PRESSURE INCREASED [None]
  - VITAMIN B12 DEFICIENCY [None]
